FAERS Safety Report 5005708-5 (Version None)
Quarter: 2006Q2

REPORT INFORMATION
  Report Type: 
  Country: None (occurrence: None)
  Receive Date: 20060515
  Receipt Date: 20060508
  Transmission Date: 20061013
  Serious: Yes (Hospitalization)
  Sender: FDA-Public Use
  Company Number: 2006056241

PATIENT
  Age: 35 Year
  Sex: Male
  Weight: 50 kg

DRUGS (8)
  1. SULFASALAZINE [Suspect]
     Indication: COLITIS ULCERATIVE
     Dosage: 3000 MG (1000 MG, 3 IN 1 D), ORAL
     Route: 048
     Dates: start: 20051101, end: 20060420
  2. FAMOTIDINE [Concomitant]
  3. ANTIFLATULENTS (ANTIFLATULENTS) [Concomitant]
  4. RINESTERON (BETAMETHASONE) [Concomitant]
  5. GASTER OD (FAMOTIDINE) [Concomitant]
  6. ALL OTHER THERAPEUTIC PRODUCTS (ALL OTHER THERAPEUTIC PRODUCTS) [Concomitant]
  7. KLANTYL (ALUMINIUM HYDROXIDE, DICYCLOVERINE HYDROCHLORIDE, MAGNESIUM O [Concomitant]
  8. KEILASE (ENZYMES NOS) [Concomitant]

REACTIONS (6)
  - ANAEMIA [None]
  - COLITIS ULCERATIVE [None]
  - CONDITION AGGRAVATED [None]
  - DIARRHOEA [None]
  - HYPOALBUMINAEMIA [None]
  - PROTEIN URINE PRESENT [None]
